FAERS Safety Report 12284218 (Version 1)
Quarter: 2016Q2

REPORT INFORMATION
  Report Type: Spontaneous
  Country: ES (occurrence: ES)
  Receive Date: 20160420
  Receipt Date: 20160420
  Transmission Date: 20160815
  Serious: Yes (Other)
  Sender: FDA-Public Use
  Company Number: ES-AMGEN-ESPSP2016047863

PATIENT
  Age: 72 Year
  Sex: Female

DRUGS (2)
  1. NPLATE [Suspect]
     Active Substance: ROMIPLOSTIM
     Indication: PLATELET COUNT ABNORMAL
     Route: 065
  2. BELIMUMAB [Concomitant]
     Active Substance: BELIMUMAB
     Dosage: 10 MG/KG, Q4WK

REACTIONS (2)
  - Off label use [Unknown]
  - Deep vein thrombosis [Unknown]
